FAERS Safety Report 8185846-9 (Version None)
Quarter: 2012Q1

REPORT INFORMATION
  Report Type: 
  Country: None (occurrence: None)
  Receive Date: 20120305
  Receipt Date: 20120218
  Transmission Date: 20120608
  Serious: Yes (Other)
  Sender: FDA-Public Use
  Company Number: PHHY2012US016620

PATIENT
  Sex: Female

DRUGS (2)
  1. ZOLEDRONIC ACID [Suspect]
     Dosage: 4 MG INTRAVENOUSLY EVERY 6 MONTHS
     Route: 042
  2. LETROZOLE [Suspect]
     Dosage: 2.5 MG, UNK
     Route: 048

REACTIONS (1)
  - RENAL FAILURE [None]
